FAERS Safety Report 9455297 (Version 1)
Quarter: 2013Q3

REPORT INFORMATION
  Report Type: Spontaneous
  Country: IT (occurrence: IT)
  Receive Date: 20130813
  Receipt Date: 20130813
  Transmission Date: 20140515
  Serious: Yes (Other)
  Sender: FDA-Public Use
  Company Number: IT-JNJFOC-20130804269

PATIENT
  Age: 40 Year
  Sex: Male

DRUGS (3)
  1. PREZISTA [Suspect]
     Indication: ANTIVIRAL TREATMENT
     Route: 048
     Dates: start: 20130226, end: 20130722
  2. ISENTRESS [Suspect]
     Indication: ANTIVIRAL TREATMENT
     Route: 048
     Dates: start: 20130226, end: 20130722
  3. NORVIR [Concomitant]
     Indication: ANTIVIRAL TREATMENT
     Route: 048
     Dates: start: 20111101

REACTIONS (1)
  - Ecchymosis [Unknown]
